FAERS Safety Report 5493990-X (Version None)
Quarter: 2007Q4

REPORT INFORMATION
  Report Type: 
  Country: None (occurrence: None)
  Receive Date: 20071023
  Receipt Date: 20071011
  Transmission Date: 20080405
  Serious: Yes (Other)
  Sender: FDA-Public Use
  Company Number: US-PFIZER INC-2007086022

PATIENT
  Sex: Female
  Weight: 55.5 kg

DRUGS (7)
  1. NEURONTIN [Suspect]
     Indication: NEURITIS
  2. GABAPENTIN [Suspect]
     Indication: NEURITIS
     Dates: start: 20070601, end: 20070701
  3. NIACIN [Concomitant]
     Dosage: DAILY DOSE:1250MG
  4. ZYPREXA [Concomitant]
  5. ATIVAN [Concomitant]
  6. ZOMIG [Concomitant]
     Indication: MIGRAINE
  7. ALL OTHER THERAPEUTIC PRODUCTS [Concomitant]

REACTIONS (2)
  - ANEURYSM [None]
  - PAIN [None]
